FAERS Safety Report 8990495 (Version 2)
Quarter: 2012Q4

REPORT INFORMATION
  Report Type: Report from Study
  Country: CA (occurrence: CA)
  Receive Date: 20121228
  Receipt Date: 20121231
  Transmission Date: 20130627
  Serious: Yes (Hospitalization, Other)
  Sender: FDA-Public Use
  Company Number: CA-ROCHE-1172549

PATIENT
  Age: 60 Year
  Sex: Male

DRUGS (1)
  1. OMALIZUMAB [Suspect]
     Indication: ASTHMA
     Dosage: 375 mg, UNK
     Route: 058
     Dates: start: 20050822

REACTIONS (5)
  - Asthma [Not Recovered/Not Resolved]
  - Cough [Unknown]
  - Chest pain [Recovered/Resolved]
  - Headache [Recovered/Resolved]
  - Injection site pain [Recovering/Resolving]
